FAERS Safety Report 21653011 (Version 1)
Quarter: 2022Q4

REPORT INFORMATION
  Report Type: Spontaneous
  Country: AU (occurrence: AU)
  Receive Date: 20221128
  Receipt Date: 20221128
  Transmission Date: 20230113
  Serious: Yes (Hospitalization)
  Sender: FDA-Public Use
  Company Number: AU-LUNDBECK-DKLU3053472

PATIENT
  Sex: Male

DRUGS (12)
  1. ESCITALOPRAM OXALATE [Suspect]
     Active Substance: ESCITALOPRAM OXALATE
     Indication: Product used for unknown indication
     Dosage: 20 MG, QAM
     Route: 048
  2. ASPIRIN [Suspect]
     Active Substance: ASPIRIN
     Indication: Product used for unknown indication
     Dosage: 100 MG, QAM
     Route: 048
  3. ALLOPURINOL [Suspect]
     Active Substance: ALLOPURINOL
     Indication: Product used for unknown indication
     Dosage: 300 MG, QHS
     Route: 048
  4. ALLOPURINOL [Suspect]
     Active Substance: ALLOPURINOL
     Dosage: 200 MG, QAM
     Route: 048
  5. ATORVASTATIN [Suspect]
     Active Substance: ATORVASTATIN
     Indication: Product used for unknown indication
     Dosage: 20 MG, QAM
     Route: 048
  6. THYROXINE [Suspect]
     Active Substance: LEVOTHYROXINE
     Indication: Product used for unknown indication
     Dosage: 75 ?G, BI-WEEKLY
     Route: 048
  7. THYROXINE [Suspect]
     Active Substance: LEVOTHYROXINE
     Dosage: 100 ?G, 5 DAYS PER WEEK
     Route: 048
  8. OLANZAPINE [Suspect]
     Active Substance: OLANZAPINE
     Indication: Product used for unknown indication
     Dosage: 25 MG, QD
     Route: 048
  9. OLANZAPINE [Suspect]
     Active Substance: OLANZAPINE
     Dosage: 5 MG, QD
     Route: 048
  10. RABEPRAZOLE SODIUM [Suspect]
     Active Substance: RABEPRAZOLE SODIUM
     Indication: Product used for unknown indication
     Dosage: 20 MG, QD
     Route: 048
  11. VALPROATE SODIUM [Suspect]
     Active Substance: VALPROATE SODIUM
     Indication: Product used for unknown indication
     Dosage: 1200 MG, BID
     Route: 048
  12. ROSUVASTATIN CALCIUM [Suspect]
     Active Substance: ROSUVASTATIN CALCIUM
     Indication: Product used for unknown indication
     Dosage: 10 MG
     Route: 048

REACTIONS (11)
  - Angiogram abnormal [Unknown]
  - Electrocardiogram abnormal [Unknown]
  - Leukocyte adhesion deficiency type I [Unknown]
  - Stenosis [Unknown]
  - Troponin increased [Not Recovered/Not Resolved]
  - Anxiety [Unknown]
  - Chest pain [Recovered/Resolved]
  - Palpitations [Unknown]
  - Tachycardia [Unknown]
  - Dyspnoea [Unknown]
  - Thrombocytopenia [Unknown]

NARRATIVE: CASE EVENT DATE: 20211101
